FAERS Safety Report 10357022 (Version 6)
Quarter: 2018Q1

REPORT INFORMATION
  Report Type: Spontaneous
  Country: JP (occurrence: JP)
  Receive Date: 20140801
  Receipt Date: 20180323
  Transmission Date: 20180508
  Serious: Yes (Hospitalization)
  Sender: FDA-Public Use
  Company Number: JP-CELGENEUS-087-21880-14074110

PATIENT
  Age: 59 Year
  Sex: Male
  Weight: 94.8 kg

DRUGS (135)
  1. REVLIMID [Suspect]
     Active Substance: LENALIDOMIDE
     Indication: PLASMA CELL MYELOMA RECURRENT
     Dosage: 15 MILLIGRAM
     Route: 048
     Dates: start: 20120725
  2. REVLIMID [Suspect]
     Active Substance: LENALIDOMIDE
     Dosage: 10 MILLIGRAM
     Route: 048
     Dates: start: 20140820
  3. LENADEX [Suspect]
     Active Substance: DEXAMETHASONE ACETATE
     Dosage: 28 MILLIGRAM
     Route: 048
     Dates: start: 20140820
  4. BAYASPIRIN [Concomitant]
     Active Substance: ASPIRIN
     Indication: PRODUCT USED FOR UNKNOWN INDICATION
     Route: 065
     Dates: start: 20120725
  5. LIPITOR [Concomitant]
     Active Substance: ATORVASTATIN CALCIUM
     Indication: PRODUCT USED FOR UNKNOWN INDICATION
     Route: 065
     Dates: start: 2003
  6. ACETAMINOPHEN. [Concomitant]
     Active Substance: ACETAMINOPHEN
     Route: 065
     Dates: start: 20140914, end: 20140915
  7. ACETAMINOPHEN. [Concomitant]
     Active Substance: ACETAMINOPHEN
     Route: 065
     Dates: start: 20160130, end: 20160131
  8. LEVOFLOXACIN HEMIHYDRATE [Concomitant]
     Active Substance: LEVOFLOXACIN
     Route: 065
     Dates: start: 20151209, end: 20151219
  9. AMLODIPINE BESYLATE. [Concomitant]
     Active Substance: AMLODIPINE BESYLATE
     Indication: PRODUCT USED FOR UNKNOWN INDICATION
     Route: 065
     Dates: start: 2003
  10. MOMETASONE FUROATE. [Concomitant]
     Active Substance: MOMETASONE FUROATE
     Indication: PRODUCT USED FOR UNKNOWN INDICATION
     Route: 065
     Dates: start: 201106
  11. KAIGEN [Concomitant]
     Active Substance: ACETAMINOPHEN\CAFFEINE\CINNAMON\GINGER\GLYCYRRHIZA GLABRA\METHYLEPHEDRINE HYDROCHLORIDE, (+/-)-
     Route: 065
     Dates: start: 20141231, end: 20141231
  12. KAIGEN [Concomitant]
     Active Substance: ACETAMINOPHEN\CAFFEINE\CINNAMON\GINGER\GLYCYRRHIZA GLABRA\METHYLEPHEDRINE HYDROCHLORIDE, (+/-)-
     Route: 065
     Dates: start: 20151208, end: 20151208
  13. KAIGEN [Concomitant]
     Active Substance: ACETAMINOPHEN\CAFFEINE\CINNAMON\GINGER\GLYCYRRHIZA GLABRA\METHYLEPHEDRINE HYDROCHLORIDE, (+/-)-
     Route: 065
     Dates: start: 20161219, end: 20161221
  14. KAIGEN [Concomitant]
     Active Substance: ACETAMINOPHEN\CAFFEINE\CINNAMON\GINGER\GLYCYRRHIZA GLABRA\METHYLEPHEDRINE HYDROCHLORIDE, (+/-)-
     Route: 065
     Dates: start: 20170115, end: 20170116
  15. PL [Concomitant]
     Active Substance: ACETAMINOPHEN\CAFFEINE\PROMETHAZINE\SALICYLAMIDE
     Route: 065
     Dates: start: 20161221, end: 20170111
  16. MEDICON [Concomitant]
     Active Substance: DEXTROMETHORPHAN HYDROBROMIDE
     Indication: ADVERSE EVENT
     Route: 065
     Dates: start: 20150104, end: 20150107
  17. EPRAZINONE HYDROCHLORIDE [Concomitant]
     Active Substance: EPRAZINONE HYDROCHLORIDE
     Route: 065
     Dates: start: 20150624
  18. EPRAZINONE HYDROCHLORIDE [Concomitant]
     Active Substance: EPRAZINONE HYDROCHLORIDE
     Route: 065
     Dates: start: 20140924, end: 20141001
  19. AZUNOL [Concomitant]
     Active Substance: SODIUM GUALENATE
     Indication: ADVERSE EVENT
     Route: 065
     Dates: start: 20150722, end: 20150726
  20. TAZOBACTAM SODIUM/PIPERACILLIN SODIUM [Concomitant]
     Active Substance: PIPERACILLIN SODIUM\TAZOBACTAM SODIUM
     Indication: ADVERSE EVENT
     Route: 065
     Dates: start: 20160130, end: 20160204
  21. CLOSTRIDIUM BUTYRICUM [Concomitant]
     Active Substance: CLOSTRIDIUM BUTYRICUM SPORES STRAIN M-55
     Indication: ADVERSE EVENT
     Route: 065
     Dates: start: 20160131, end: 20160211
  22. ELOTUZUMAB. [Suspect]
     Active Substance: ELOTUZUMAB
     Indication: PLASMA CELL MYELOMA RECURRENT
     Dosage: 872 MILLIGRAM
     Route: 041
     Dates: start: 20120709, end: 20120709
  23. FLURBIPROFEN. [Concomitant]
     Active Substance: FLURBIPROFEN
     Indication: PRODUCT USED FOR UNKNOWN INDICATION
     Route: 065
     Dates: start: 20130905
  24. LEVOFLOXACIN HEMIHYDRATE [Concomitant]
     Active Substance: LEVOFLOXACIN
     Route: 065
     Dates: start: 20151001
  25. LEVOFLOXACIN HEMIHYDRATE [Concomitant]
     Active Substance: LEVOFLOXACIN
     Route: 065
     Dates: start: 20170803, end: 20170803
  26. LANSOPRAZOLE. [Concomitant]
     Active Substance: LANSOPRAZOLE
     Indication: PRODUCT USED FOR UNKNOWN INDICATION
     Route: 065
     Dates: start: 20120725
  27. SOLACET F [Concomitant]
     Route: 065
     Dates: start: 20140803, end: 20140803
  28. KCL [Concomitant]
     Active Substance: POTASSIUM CHLORIDE
     Indication: ADVERSE EVENT
     Route: 050
     Dates: start: 20140721, end: 20140721
  29. MIYA-BM [Concomitant]
     Active Substance: CLOSTRIDIUM BUTYRICUM SPORES STRAIN M-55
     Route: 065
     Dates: start: 20150916, end: 20151014
  30. RABEPRAZOLE SODIUM. [Concomitant]
     Active Substance: RABEPRAZOLE SODIUM
     Indication: PRODUCT USED FOR UNKNOWN INDICATION
     Route: 065
     Dates: start: 20140802
  31. MAALOX ANTACID [Concomitant]
     Active Substance: ALUMINUM HYDROXIDE\DIMETHICONE\MAGNESIUM HYDROXIDE
     Indication: ADVERSE EVENT
     Route: 065
     Dates: start: 20140802, end: 20140802
  32. KAIGEN [Concomitant]
     Active Substance: ACETAMINOPHEN\CAFFEINE\CINNAMON\GINGER\GLYCYRRHIZA GLABRA\METHYLEPHEDRINE HYDROCHLORIDE, (+/-)-
     Route: 065
     Dates: start: 20160727, end: 20160802
  33. EPRAZINONE HYDROCHLORIDE [Concomitant]
     Active Substance: EPRAZINONE HYDROCHLORIDE
     Route: 065
     Dates: start: 20170913, end: 20170927
  34. CEFDINIR. [Concomitant]
     Active Substance: CEFDINIR
     Indication: ADVERSE EVENT
     Route: 065
     Dates: start: 20150610, end: 20150619
  35. AZUNOL [Concomitant]
     Active Substance: SODIUM GUALENATE
     Route: 065
     Dates: start: 20170830, end: 20170927
  36. DEXAMETHASONE. [Suspect]
     Active Substance: DEXAMETHASONE
     Indication: PLASMA CELL MYELOMA
     Dosage: 8 MILLIGRAM
     Route: 041
     Dates: start: 20120725, end: 20130326
  37. ELOTUZUMAB. [Suspect]
     Active Substance: ELOTUZUMAB
     Dosage: 10 MILLIGRAM/KILOGRAM
     Route: 041
     Dates: start: 20120725, end: 20130326
  38. ZYLORIC [Concomitant]
     Active Substance: ALLOPURINOL
     Indication: PRODUCT USED FOR UNKNOWN INDICATION
     Route: 065
     Dates: start: 2003
  39. ACETAMINOPHEN. [Concomitant]
     Active Substance: ACETAMINOPHEN
     Route: 065
     Dates: start: 20161207, end: 20161214
  40. TENELIGIPTIN HYDROBROMIDE HYDRATE [Concomitant]
     Indication: ADVERSE EVENT
     Route: 065
     Dates: start: 20140112, end: 20140809
  41. TENELIGIPTIN HYDROBROMIDE HYDRATE [Concomitant]
     Route: 065
     Dates: start: 20140124
  42. TENELIGIPTIN HYDROBROMIDE HYDRATE [Concomitant]
     Route: 065
     Dates: start: 20141031
  43. LEVOFLOXACIN HEMIHYDRATE [Concomitant]
     Active Substance: LEVOFLOXACIN
     Indication: PRODUCT USED FOR UNKNOWN INDICATION
     Route: 048
     Dates: start: 20140717, end: 20140720
  44. LEVOFLOXACIN HEMIHYDRATE [Concomitant]
     Active Substance: LEVOFLOXACIN
     Route: 065
     Dates: start: 20150121, end: 20150123
  45. ACETYLSALICYLIC ACID [Concomitant]
     Active Substance: ASPIRIN
     Indication: PRODUCT USED FOR UNKNOWN INDICATION
     Route: 065
     Dates: start: 20120725
  46. KAIGEN [Concomitant]
     Active Substance: ACETAMINOPHEN\CAFFEINE\CINNAMON\GINGER\GLYCYRRHIZA GLABRA\METHYLEPHEDRINE HYDROCHLORIDE, (+/-)-
     Route: 065
     Dates: start: 20161023, end: 20161024
  47. KAIGEN [Concomitant]
     Active Substance: ACETAMINOPHEN\CAFFEINE\CINNAMON\GINGER\GLYCYRRHIZA GLABRA\METHYLEPHEDRINE HYDROCHLORIDE, (+/-)-
     Route: 065
     Dates: start: 20161130, end: 20161201
  48. PL [Concomitant]
     Active Substance: ACETAMINOPHEN\CAFFEINE\PROMETHAZINE\SALICYLAMIDE
     Indication: ADVERSE EVENT
     Route: 065
     Dates: start: 20140305, end: 20140312
  49. PL [Concomitant]
     Active Substance: ACETAMINOPHEN\CAFFEINE\PROMETHAZINE\SALICYLAMIDE
     Route: 065
     Dates: start: 20140915, end: 20141022
  50. CARBOCISTEINE [Concomitant]
     Active Substance: CARBOCYSTEINE
     Indication: ADVERSE EVENT
     Route: 065
     Dates: start: 20150107
  51. CARBOCISTEINE [Concomitant]
     Active Substance: CARBOCYSTEINE
     Route: 065
     Dates: start: 20151209, end: 20151223
  52. CARBOCISTEINE [Concomitant]
     Active Substance: CARBOCYSTEINE
     Route: 065
     Dates: start: 20170913, end: 20170927
  53. FLUOROMETHOLONE. [Concomitant]
     Active Substance: FLUOROMETHOLONE
     Indication: PRODUCT USED FOR UNKNOWN INDICATION
     Route: 065
     Dates: start: 20151009, end: 20160217
  54. FLUOROMETHOLONE. [Concomitant]
     Active Substance: FLUOROMETHOLONE
     Route: 065
     Dates: start: 20170913
  55. FLUOROMETHOLONE. [Concomitant]
     Active Substance: FLUOROMETHOLONE
     Route: 065
     Dates: start: 20170902, end: 20170927
  56. BETAMETHASONE SODIUM PHOSPHATE [Concomitant]
     Active Substance: BETAMETHASONE SODIUM PHOSPHATE
     Indication: PRODUCT USED FOR UNKNOWN INDICATION
     Route: 065
     Dates: start: 20151001, end: 20160217
  57. DEXAMETHASONE. [Suspect]
     Active Substance: DEXAMETHASONE
     Dosage: 8 MILLIGRAM
     Route: 041
     Dates: start: 20140820
  58. ACETAMINOPHEN. [Concomitant]
     Active Substance: ACETAMINOPHEN
     Route: 065
     Dates: start: 20131005
  59. ACETAMINOPHEN. [Concomitant]
     Active Substance: ACETAMINOPHEN
     Route: 065
     Dates: start: 20140215, end: 20140215
  60. LEVOFLOXACIN HEMIHYDRATE [Concomitant]
     Active Substance: LEVOFLOXACIN
     Route: 065
     Dates: start: 20141210, end: 20141210
  61. LEVOFLOXACIN HEMIHYDRATE [Concomitant]
     Active Substance: LEVOFLOXACIN
     Route: 065
     Dates: start: 20160330, end: 20160412
  62. TRIAMCINOLONE ACETONIDE. [Concomitant]
     Active Substance: TRIAMCINOLONE ACETONIDE
     Indication: PRODUCT USED FOR UNKNOWN INDICATION
     Route: 065
     Dates: start: 20130109
  63. SOLDEM 3A [Concomitant]
     Active Substance: CARBOHYDRATES\POTASSIUM CHLORIDE\SODIUM CHLORIDE\SODIUM LACTATE
     Indication: ADVERSE EVENT
     Route: 065
     Dates: start: 20140720, end: 20140730
  64. SOLDEM 3A [Concomitant]
     Active Substance: CARBOHYDRATES\POTASSIUM CHLORIDE\SODIUM CHLORIDE\SODIUM LACTATE
     Route: 065
     Dates: start: 20160130, end: 20160201
  65. MIYA-BM [Concomitant]
     Active Substance: CLOSTRIDIUM BUTYRICUM SPORES STRAIN M-55
     Route: 065
     Dates: start: 20140724, end: 20140731
  66. MIYA-BM [Concomitant]
     Active Substance: CLOSTRIDIUM BUTYRICUM SPORES STRAIN M-55
     Route: 065
     Dates: start: 20150121, end: 20150129
  67. KAIGEN [Concomitant]
     Active Substance: ACETAMINOPHEN\CAFFEINE\CINNAMON\GINGER\GLYCYRRHIZA GLABRA\METHYLEPHEDRINE HYDROCHLORIDE, (+/-)-
     Route: 065
     Dates: start: 20150331, end: 20150331
  68. KAIGEN [Concomitant]
     Active Substance: ACETAMINOPHEN\CAFFEINE\CINNAMON\GINGER\GLYCYRRHIZA GLABRA\METHYLEPHEDRINE HYDROCHLORIDE, (+/-)-
     Route: 065
     Dates: start: 20160125, end: 20160126
  69. PL [Concomitant]
     Active Substance: ACETAMINOPHEN\CAFFEINE\PROMETHAZINE\SALICYLAMIDE
     Route: 065
     Dates: start: 20160327, end: 20160330
  70. EPRAZINONE HYDROCHLORIDE [Concomitant]
     Active Substance: EPRAZINONE HYDROCHLORIDE
     Route: 065
     Dates: start: 20151209, end: 20151223
  71. CARBOCISTEINE [Concomitant]
     Active Substance: CARBOCYSTEINE
     Route: 065
     Dates: start: 20160327, end: 20160413
  72. REVLIMID [Suspect]
     Active Substance: LENALIDOMIDE
     Indication: PLASMA CELL MYELOMA
     Dosage: 25 MILLIGRAM
     Route: 048
     Dates: start: 20120822, end: 20120911
  73. DEXAMETHASONE. [Suspect]
     Active Substance: DEXAMETHASONE
     Indication: PLASMA CELL MYELOMA RECURRENT
     Dosage: 8 MILLIGRAM
     Route: 041
     Dates: start: 20120709, end: 20120709
  74. ELOTUZUMAB. [Suspect]
     Active Substance: ELOTUZUMAB
     Indication: PLASMA CELL MYELOMA
     Dosage: 10 MILLIGRAM/KILOGRAM
     Route: 041
     Dates: start: 20120725, end: 20120725
  75. ACETAMINOPHEN. [Concomitant]
     Active Substance: ACETAMINOPHEN
     Indication: ADVERSE EVENT
     Route: 065
     Dates: start: 20130223, end: 20130314
  76. ACETAMINOPHEN. [Concomitant]
     Active Substance: ACETAMINOPHEN
     Route: 065
     Dates: start: 20131122, end: 20131123
  77. ZOMETA [Concomitant]
     Active Substance: ZOLEDRONIC ACID
     Indication: PRODUCT USED FOR UNKNOWN INDICATION
     Route: 065
     Dates: start: 20110907
  78. LEVOFLOXACIN HEMIHYDRATE [Concomitant]
     Active Substance: LEVOFLOXACIN
     Route: 065
     Dates: start: 20150624, end: 20150630
  79. LEVOFLOXACIN HEMIHYDRATE [Concomitant]
     Active Substance: LEVOFLOXACIN
     Route: 065
     Dates: start: 20160204, end: 20160217
  80. LEVOFLOXACIN HEMIHYDRATE [Concomitant]
     Active Substance: LEVOFLOXACIN
     Route: 065
     Dates: start: 20161207, end: 20161214
  81. HYDROXYZINE HYDROCHLORIDE. [Concomitant]
     Active Substance: HYDROXYZINE HYDROCHLORIDE
     Indication: ADVERSE EVENT
     Route: 065
     Dates: start: 20140720, end: 20140725
  82. LACTEC [Concomitant]
     Active Substance: CALCIUM CHLORIDE ANHYDROUS\POTASSIUM CHLORIDE\SODIUM CHLORIDE\SODIUM LACTATE
     Indication: ADVERSE EVENT
     Route: 050
     Dates: start: 20140721, end: 20140721
  83. MIYA-BM [Concomitant]
     Active Substance: CLOSTRIDIUM BUTYRICUM SPORES STRAIN M-55
     Indication: ADVERSE EVENT
     Route: 065
     Dates: start: 20140514, end: 20140722
  84. FAMOTIDINE. [Concomitant]
     Active Substance: FAMOTIDINE
     Indication: ADVERSE EVENT
     Route: 065
     Dates: start: 20140802, end: 20140802
  85. METOCLOPRAMIDE HYDROCHLORIDE. [Concomitant]
     Active Substance: METOCLOPRAMIDE HYDROCHLORIDE
     Indication: ADVERSE EVENT
     Route: 065
     Dates: start: 20140803, end: 20140803
  86. KAIGEN [Concomitant]
     Active Substance: ACETAMINOPHEN\CAFFEINE\CINNAMON\GINGER\GLYCYRRHIZA GLABRA\METHYLEPHEDRINE HYDROCHLORIDE, (+/-)-
     Indication: ADVERSE EVENT
     Route: 065
     Dates: start: 20140914, end: 20140916
  87. KAIGEN [Concomitant]
     Active Substance: ACETAMINOPHEN\CAFFEINE\CINNAMON\GINGER\GLYCYRRHIZA GLABRA\METHYLEPHEDRINE HYDROCHLORIDE, (+/-)-
     Route: 065
     Dates: start: 20150403, end: 20150408
  88. KAIGEN [Concomitant]
     Active Substance: ACETAMINOPHEN\CAFFEINE\CINNAMON\GINGER\GLYCYRRHIZA GLABRA\METHYLEPHEDRINE HYDROCHLORIDE, (+/-)-
     Route: 065
     Dates: start: 20150622, end: 20150623
  89. KAIGEN [Concomitant]
     Active Substance: ACETAMINOPHEN\CAFFEINE\CINNAMON\GINGER\GLYCYRRHIZA GLABRA\METHYLEPHEDRINE HYDROCHLORIDE, (+/-)-
     Route: 065
     Dates: start: 20160811, end: 20160815
  90. KAIGEN [Concomitant]
     Active Substance: ACETAMINOPHEN\CAFFEINE\CINNAMON\GINGER\GLYCYRRHIZA GLABRA\METHYLEPHEDRINE HYDROCHLORIDE, (+/-)-
     Route: 065
     Dates: start: 20161126, end: 20161128
  91. PL [Concomitant]
     Active Substance: ACETAMINOPHEN\CAFFEINE\PROMETHAZINE\SALICYLAMIDE
     Route: 065
     Dates: start: 20150610, end: 20150615
  92. INAVIR (LANINAMIVIR) [Concomitant]
     Active Substance: LANINAMIVIR
     Indication: ADVERSE EVENT
     Route: 065
     Dates: start: 20150104, end: 20150104
  93. EPRAZINONE HYDROCHLORIDE [Concomitant]
     Active Substance: EPRAZINONE HYDROCHLORIDE
     Route: 065
     Dates: start: 20160127, end: 20160129
  94. ACETATED RINGER^S SOLUTION [Concomitant]
     Indication: ADVERSE EVENT
     Route: 065
     Dates: start: 20160130, end: 20160130
  95. DEXTROMETHORPHAN HYDROBROMIDE HYDRATE [Concomitant]
     Active Substance: DEXTROMETHORPHAN HYDROBROMIDE
     Indication: ADVERSE EVENT
     Route: 065
     Dates: start: 20160201, end: 20160211
  96. REVLIMID [Suspect]
     Active Substance: LENALIDOMIDE
     Dosage: 15 MILLIGRAM
     Route: 048
     Dates: start: 20120725
  97. ELOTUZUMAB. [Suspect]
     Active Substance: ELOTUZUMAB
     Dosage: 10 MILLIGRAM/KILOGRAM
     Route: 041
     Dates: start: 20140820
  98. LENADEX [Suspect]
     Active Substance: DEXAMETHASONE ACETATE
     Indication: PLASMA CELL MYELOMA RECURRENT
     Dosage: 28 MILLIGRAM
     Route: 048
     Dates: start: 20120725, end: 20130319
  99. SHAKUYAKUKANZOTO [Concomitant]
     Active Substance: HERBALS
     Indication: PRODUCT USED FOR UNKNOWN INDICATION
     Route: 065
     Dates: start: 20130529
  100. ACETAMINOPHEN. [Concomitant]
     Active Substance: ACETAMINOPHEN
     Route: 065
     Dates: start: 20140720, end: 20140725
  101. ACETAMINOPHEN. [Concomitant]
     Active Substance: ACETAMINOPHEN
     Route: 065
     Dates: start: 20150609, end: 20150609
  102. LEVOFLOXACIN HEMIHYDRATE [Concomitant]
     Active Substance: LEVOFLOXACIN
     Route: 048
     Dates: start: 20140917, end: 20140924
  103. LEVOFLOXACIN HEMIHYDRATE [Concomitant]
     Active Substance: LEVOFLOXACIN
     Route: 065
     Dates: start: 20170902, end: 20170927
  104. POTASSIUM ASPARTATE [Concomitant]
     Active Substance: POTASSIUM ASPARTATE
     Indication: ADVERSE EVENT
     Route: 050
     Dates: start: 20140721, end: 20140728
  105. KAIGEN [Concomitant]
     Active Substance: ACETAMINOPHEN\CAFFEINE\CINNAMON\GINGER\GLYCYRRHIZA GLABRA\METHYLEPHEDRINE HYDROCHLORIDE, (+/-)-
     Route: 065
     Dates: start: 20141011, end: 20141013
  106. KAIGEN [Concomitant]
     Active Substance: ACETAMINOPHEN\CAFFEINE\CINNAMON\GINGER\GLYCYRRHIZA GLABRA\METHYLEPHEDRINE HYDROCHLORIDE, (+/-)-
     Route: 065
     Dates: start: 20150607, end: 20150609
  107. KAIGEN [Concomitant]
     Active Substance: ACETAMINOPHEN\CAFFEINE\CINNAMON\GINGER\GLYCYRRHIZA GLABRA\METHYLEPHEDRINE HYDROCHLORIDE, (+/-)-
     Route: 065
     Dates: start: 20150917, end: 20150922
  108. KAIGEN [Concomitant]
     Active Substance: ACETAMINOPHEN\CAFFEINE\CINNAMON\GINGER\GLYCYRRHIZA GLABRA\METHYLEPHEDRINE HYDROCHLORIDE, (+/-)-
     Route: 065
     Dates: start: 20170307, end: 20170315
  109. EPRAZINONE HYDROCHLORIDE [Concomitant]
     Active Substance: EPRAZINONE HYDROCHLORIDE
     Route: 065
     Dates: start: 20161221, end: 20170111
  110. CARBOCISTEINE [Concomitant]
     Active Substance: CARBOCYSTEINE
     Route: 065
     Dates: start: 20160127, end: 20160129
  111. FUROSEMIDE. [Concomitant]
     Active Substance: FUROSEMIDE
     Indication: PRODUCT USED FOR UNKNOWN INDICATION
     Route: 065
     Dates: start: 20160120, end: 20160120
  112. KENALOG [Concomitant]
     Active Substance: TRIAMCINOLONE ACETONIDE
     Indication: ADVERSE EVENT
     Route: 065
     Dates: start: 20130109, end: 20170510
  113. NORVASC [Concomitant]
     Active Substance: AMLODIPINE BESYLATE
     Indication: PRODUCT USED FOR UNKNOWN INDICATION
     Route: 065
     Dates: start: 2003
  114. ALLEGRA [Concomitant]
     Active Substance: FEXOFENADINE HYDROCHLORIDE
     Route: 065
     Dates: start: 20121101
  115. BROTIZOLAM [Concomitant]
     Active Substance: BROTIZOLAM
     Indication: ADVERSE EVENT
     Route: 065
     Dates: start: 20130918
  116. ACETAMINOPHEN. [Concomitant]
     Active Substance: ACETAMINOPHEN
     Route: 065
     Dates: start: 20130721, end: 20130723
  117. LEVOFLOXACIN HEMIHYDRATE [Concomitant]
     Active Substance: LEVOFLOXACIN
     Route: 065
     Dates: start: 20150403, end: 20150407
  118. ALLOPURINOL. [Concomitant]
     Active Substance: ALLOPURINOL
     Indication: PRODUCT USED FOR UNKNOWN INDICATION
     Route: 065
     Dates: start: 2003
  119. MIYA-BM [Concomitant]
     Active Substance: CLOSTRIDIUM BUTYRICUM SPORES STRAIN M-55
     Route: 065
     Dates: start: 20140730, end: 20140820
  120. KAIGEN [Concomitant]
     Active Substance: ACETAMINOPHEN\CAFFEINE\CINNAMON\GINGER\GLYCYRRHIZA GLABRA\METHYLEPHEDRINE HYDROCHLORIDE, (+/-)-
     Route: 065
     Dates: start: 20160524, end: 20160605
  121. PL [Concomitant]
     Active Substance: ACETAMINOPHEN\CAFFEINE\PROMETHAZINE\SALICYLAMIDE
     Route: 065
     Dates: start: 20160127, end: 20160129
  122. REVLIMID [Suspect]
     Active Substance: LENALIDOMIDE
     Dosage: 10 MILLIGRAM
     Route: 048
  123. TAKEPRON [Concomitant]
     Active Substance: LANSOPRAZOLE
     Indication: PRODUCT USED FOR UNKNOWN INDICATION
     Route: 065
     Dates: start: 20120725, end: 20140724
  124. ALLEGRA [Concomitant]
     Active Substance: FEXOFENADINE HYDROCHLORIDE
     Indication: ADVERSE EVENT
     Route: 065
     Dates: start: 20121026, end: 20121031
  125. FULMETA [Concomitant]
     Active Substance: MOMETASONE
     Indication: PRODUCT USED FOR UNKNOWN INDICATION
     Route: 065
     Dates: start: 201106
  126. SOLACET F [Concomitant]
     Indication: ADVERSE EVENT
     Route: 065
     Dates: start: 20140625, end: 20140625
  127. SOLACET F [Concomitant]
     Route: 065
     Dates: start: 20140720, end: 20140722
  128. PHELLOBERIN [Concomitant]
     Active Substance: BERBERINE\GERANIUM
     Indication: ADVERSE EVENT
     Route: 065
     Dates: start: 20140730, end: 20140815
  129. KAIGEN [Concomitant]
     Active Substance: ACETAMINOPHEN\CAFFEINE\CINNAMON\GINGER\GLYCYRRHIZA GLABRA\METHYLEPHEDRINE HYDROCHLORIDE, (+/-)-
     Route: 065
     Dates: start: 20141205, end: 20141210
  130. EPRAZINONE HYDROCHLORIDE [Concomitant]
     Active Substance: EPRAZINONE HYDROCHLORIDE
     Indication: ADVERSE EVENT
     Route: 065
     Dates: start: 20150107
  131. EPRAZINONE HYDROCHLORIDE [Concomitant]
     Active Substance: EPRAZINONE HYDROCHLORIDE
     Route: 065
     Dates: start: 20160327, end: 20160413
  132. CARBOCISTEINE [Concomitant]
     Active Substance: CARBOCYSTEINE
     Route: 065
     Dates: start: 20150624
  133. CARBOCISTEINE [Concomitant]
     Active Substance: CARBOCYSTEINE
     Route: 065
     Dates: start: 20161221, end: 20170111
  134. DORZOLAMIDE HYDROCHLORIDE-TIMOLOL MALEATE [Concomitant]
     Active Substance: DORZOLAMIDE HYDROCHLORIDE\TIMOLOL MALEATE
     Indication: ADVERSE EVENT
     Route: 065
     Dates: start: 20151002, end: 20160217
  135. BROMFENAC SODIUM [Concomitant]
     Active Substance: BROMFENAC SODIUM
     Indication: PRODUCT USED FOR UNKNOWN INDICATION
     Route: 065
     Dates: start: 20151001, end: 20160217

REACTIONS (1)
  - Colitis [Recovered/Resolved]

NARRATIVE: CASE EVENT DATE: 20140720
